FAERS Safety Report 18887680 (Version 9)
Quarter: 2022Q1

REPORT INFORMATION
  Report Type: Report from Study
  Country: BR (occurrence: BR)
  Receive Date: 20210212
  Receipt Date: 20220129
  Transmission Date: 20220423
  Serious: Yes (Other)
  Sender: FDA-Public Use
  Company Number: NVSC2021BR031321

PATIENT
  Age: 54 Year
  Sex: Female

DRUGS (5)
  1. KISQALI [Suspect]
     Active Substance: RIBOCICLIB
     Indication: Breast cancer female
     Dosage: 3 DOSAGE FORM (TAKES FOR 21 DAYS AND PAUSES FOR 7)
     Route: 065
     Dates: start: 20191121
  2. KISQALI [Suspect]
     Active Substance: RIBOCICLIB
     Dosage: UNK
     Route: 065
     Dates: start: 20201021
  3. KISQALI [Suspect]
     Active Substance: RIBOCICLIB
     Dosage: 3 DOSAGE FORM, QD (21 DAY USE AND 7 DAY BREAK)
     Route: 065
     Dates: start: 20201121
  4. KISQALI [Suspect]
     Active Substance: RIBOCICLIB
     Dosage: UNK
     Route: 065
     Dates: start: 202011
  5. KISQALI [Suspect]
     Active Substance: RIBOCICLIB
     Dosage: 3 UNK
     Route: 065
     Dates: start: 20201121

REACTIONS (11)
  - Immunodeficiency [Recovered/Resolved]
  - Immunodeficiency [Recovered/Resolved]
  - Immunodeficiency [Recovered/Resolved]
  - Bone disorder [Unknown]
  - Decreased immune responsiveness [Unknown]
  - Dry skin [Recovering/Resolving]
  - Pruritus [Recovering/Resolving]
  - Off label use [Recovered/Resolved]
  - Anaemia [Recovering/Resolving]
  - Fatigue [Recovering/Resolving]
  - Decreased appetite [Recovering/Resolving]

NARRATIVE: CASE EVENT DATE: 20210125
